FAERS Safety Report 11381354 (Version 1)
Quarter: 2015Q3

REPORT INFORMATION
  Report Type: Spontaneous
  Country: AU (occurrence: AU)
  Receive Date: 20150814
  Receipt Date: 20150814
  Transmission Date: 20151125
  Serious: Yes (Other)
  Sender: FDA-Public Use
  Company Number: AU-ABBVIE-15P-008-1434600-00

PATIENT
  Age: 57 Year
  Sex: Male
  Weight: 75 kg

DRUGS (2)
  1. LIPIDIL [Suspect]
     Active Substance: FENOFIBRATE
     Indication: HYPERTRIGLYCERIDAEMIA
     Route: 048
     Dates: start: 2011
  2. LIPIDIL [Suspect]
     Active Substance: FENOFIBRATE
     Route: 065

REACTIONS (9)
  - Anxiety [Recovered/Resolved]
  - Hypervigilance [Unknown]
  - Anxiety [Unknown]
  - Aggression [Unknown]
  - Depression [Recovered/Resolved]
  - Obsessive-compulsive disorder [Recovered/Resolved]
  - Nervousness [Unknown]
  - Irritability [Unknown]
  - Loss of consciousness [Unknown]
